FAERS Safety Report 9414375 (Version 1)
Quarter: 2013Q3

REPORT INFORMATION
  Report Type: Spontaneous
  Country: US (occurrence: US)
  Receive Date: 20130723
  Receipt Date: 20130723
  Transmission Date: 20140515
  Serious: No
  Sender: FDA-Public Use
  Company Number: US-009507513-1307USA011379

PATIENT
  Age: 58 Year
  Sex: Male
  Weight: 95.24 kg

DRUGS (10)
  1. PEG-INTRON [Suspect]
     Dosage: REDIPEN, 150 MICROGRAM/0.5 ML, QW
     Route: 058
  2. REBETOL [Suspect]
     Dosage: 200 MG, UNK
  3. EVENING PRIMROSE OIL [Concomitant]
  4. CRANBERRY [Concomitant]
  5. IMITREX (SUMATRIPTAN) [Concomitant]
     Dosage: 50 MG, UNK
  6. VIAGRA [Concomitant]
     Dosage: 100 MG, UNK
  7. VITAMINS (UNSPECIFIED) [Concomitant]
  8. VITAMIN D (UNSPECIFIED) [Concomitant]
  9. GLUCOSAMINE [Concomitant]
     Dosage: 1 G, UNK
  10. TURMERIC [Concomitant]
     Dosage: 500 MG, UNK

REACTIONS (4)
  - Viral load increased [Unknown]
  - Irritability [Unknown]
  - Migraine [Unknown]
  - Fatigue [Unknown]
